FAERS Safety Report 12708300 (Version 1)
Quarter: 2016Q3

REPORT INFORMATION
  Report Type: Spontaneous
  Country: JP (occurrence: JP)
  Receive Date: 20160901
  Receipt Date: 20160901
  Transmission Date: 20161109
  Serious: Yes (Other)
  Sender: FDA-Public Use
  Company Number: JP-MYLANLABS-2016M1036963

PATIENT

DRUGS (4)
  1. GEMCITABINE [Concomitant]
     Active Substance: GEMCITABINE\GEMCITABINE HYDROCHLORIDE
     Indication: LEIOMYOSARCOMA
     Route: 065
  2. AMLODIPINE [Suspect]
     Active Substance: AMLODIPINE BESYLATE
     Indication: LEIOMYOSARCOMA RECURRENT
     Dosage: 5MG
     Route: 048
  3. DOCETAXEL. [Concomitant]
     Active Substance: DOCETAXEL
     Indication: LEIOMYOSARCOMA
     Route: 065
  4. PAZOPANIB [Interacting]
     Active Substance: PAZOPANIB
     Indication: LEIOMYOSARCOMA RECURRENT
     Dosage: 800MG DAILY
     Route: 048

REACTIONS (4)
  - Neutropenia [Recovered/Resolved]
  - Blood pressure increased [Unknown]
  - Thrombocytopenia [Unknown]
  - Drug interaction [Recovering/Resolving]
